FAERS Safety Report 7238125-8 (Version None)
Quarter: 2011Q1

REPORT INFORMATION
  Report Type: 
  Country: None (occurrence: None)
  Receive Date: 20110121
  Receipt Date: 20110110
  Transmission Date: 20110831
  Serious: Yes (Other)
  Sender: FDA-Public Use
  Company Number: US-ELI_LILLY_AND_COMPANY-US201101003628

PATIENT
  Sex: Female

DRUGS (7)
  1. CELEXA [Concomitant]
     Dosage: 40 MG, DAILY (1/D)
  2. VALACICLOVIR [Concomitant]
     Indication: HERPES VIRUS INFECTION
     Dosage: 500 MG, DAILY (1/D)
  3. PERCOCET [Concomitant]
  4. XANAX /USA/ [Concomitant]
  5. CYMBALTA [Suspect]
     Dosage: 60 MG, DAILY (1/D)
     Route: 064
  6. TRAZODONE [Concomitant]
     Dosage: 200 MG, DAILY (1/D)
  7. CLONAZEPAM [Concomitant]

REACTIONS (2)
  - DRUG EXPOSURE DURING PREGNANCY [None]
  - PREMATURE LABOUR [None]
